FAERS Safety Report 6611198-9 (Version None)
Quarter: 2010Q1

REPORT INFORMATION
  Report Type: 
  Country: None (occurrence: None)
  Receive Date: 20100303
  Receipt Date: 20100216
  Transmission Date: 20100710
  Serious: Yes (Hospitalization, Other)
  Sender: FDA-Public Use
  Company Number: US-ELI_LILLY_AND_COMPANY-US200912005328

PATIENT
  Sex: Female

DRUGS (18)
  1. FORTEO [Suspect]
     Indication: OSTEOPOROSIS
     Dosage: 20 UG, DAILY (1/D)
     Dates: start: 20090722
  2. CALCIUM [Concomitant]
     Dosage: 600 MG, UNK
  3. PREDNISONE [Concomitant]
     Dosage: 5 MG, UNK
     Route: 065
  4. FOLIC ACID [Concomitant]
     Dosage: 1 MG, UNK
  5. METHOTREXATE [Concomitant]
     Dosage: 800 MG, WEEKLY (1/W)
  6. DITROPAN /USA/ [Concomitant]
     Dosage: 200 MG, UNK
  7. LEVOXYL [Concomitant]
     Dosage: 50 MG, UNK
  8. LEVOXYL [Concomitant]
     Dosage: 75 UG, DAILY (1/D)
     Route: 065
  9. RANITIDINE [Concomitant]
     Dosage: 150 MG, UNK
  10. CELEXA [Concomitant]
     Dosage: 20 MG, UNK
  11. NEURONTIN [Concomitant]
     Dosage: 300 MG, UNK
  12. POTASSIUM [Concomitant]
     Dosage: UNK, AS NEEDED
  13. DIURETICS [Concomitant]
     Dosage: UNK, AS NEEDED
  14. SPIRIVA [Concomitant]
     Dosage: UNK, AS NEEDED
  15. FLOVENT [Concomitant]
     Dosage: UNK, AS NEEDED
  16. PROAIR HFA [Concomitant]
     Dosage: UNK, AS NEEDED
  17. PLAVIX [Concomitant]
     Dosage: UNK, UNKNOWN
     Route: 065
  18. VITAMIN D [Concomitant]
     Dosage: UNK, UNKNOWN
     Route: 065

REACTIONS (4)
  - ACUTE CORONARY SYNDROME [None]
  - ACUTE MYOCARDIAL INFARCTION [None]
  - CONTUSION [None]
  - GLUCOSE TOLERANCE IMPAIRED [None]
